FAERS Safety Report 9467637 (Version 1)
Quarter: 2013Q3

REPORT INFORMATION
  Report Type: Spontaneous
  Country: US (occurrence: None)
  Receive Date: 20130819
  Receipt Date: 20130819
  Transmission Date: 20140515
  Serious: Yes (Other)
  Sender: FDA-Public Use
  Company Number: None

PATIENT
  Age: 71 Year
  Sex: Female
  Weight: 58.97 kg

DRUGS (1)
  1. PROLIA 60 MG IN 1 ML SOLUTION AMGDEN [Suspect]
     Dosage: ONE INJECTION

REACTIONS (2)
  - Back pain [None]
  - Musculoskeletal pain [None]
